FAERS Safety Report 7548882-9 (Version None)
Quarter: 2011Q2

REPORT INFORMATION
  Report Type: 
  Country: None (occurrence: None)
  Receive Date: 20110615
  Receipt Date: 20110607
  Transmission Date: 20111010
  Serious: Yes (Hospitalization)
  Sender: FDA-Public Use
  Company Number: US-SANOFI-AVENTIS-2011SA036522

PATIENT
  Age: 72 Year
  Sex: Male

DRUGS (14)
  1. SPIRIVA [Concomitant]
     Dosage: INHALATION
     Dates: start: 20051025
  2. ATENOLOL [Concomitant]
  3. AMARYL [Suspect]
     Indication: TYPE 2 DIABETES MELLITUS
     Route: 048
     Dates: start: 20070730
  4. DOXAZOSIN MESYLATE [Concomitant]
  5. NEURONTIN [Concomitant]
     Dates: start: 20091215
  6. ASPIRIN [Concomitant]
  7. HYDROCHLOROTHIAZIDE [Concomitant]
     Dates: start: 20000303
  8. MOBIC [Concomitant]
     Dates: start: 20051101
  9. METFORMIN HCL [Concomitant]
     Dates: start: 20040920
  10. AMARYL [Suspect]
     Route: 048
  11. ALEFACEPT [Suspect]
     Indication: PSORIASIS
     Route: 030
     Dates: start: 20080905, end: 20081126
  12. TEMOVATE [Concomitant]
  13. ULTRAVATE [Concomitant]
  14. ALL OTHER THERAPEUTIC PRODUCTS [Concomitant]

REACTIONS (2)
  - SYNCOPE [None]
  - HYPERHIDROSIS [None]
